FAERS Safety Report 10640346 (Version 1)
Quarter: 2014Q4

REPORT INFORMATION
  Report Type: Spontaneous
  Country: US (occurrence: None)
  Receive Date: 20141208
  Receipt Date: 20141208
  Transmission Date: 20150529
  Serious: Yes (Other)
  Sender: FDA-Public Use
  Company Number: None

PATIENT
  Age: 59 Year
  Sex: Female
  Weight: 53.52 kg

DRUGS (1)
  1. NORCO [Suspect]
     Active Substance: ACETAMINOPHEN\HYDROCODONE BITARTRATE
     Indication: PAIN
     Dosage: 1 PILL FOUR TIMES DAILY ORAL
     Route: 048

REACTIONS (5)
  - Nausea [None]
  - Inadequate analgesia [None]
  - Product quality issue [None]
  - Product substitution issue [None]
  - Vomiting [None]

NARRATIVE: CASE EVENT DATE: 20140820
